FAERS Safety Report 4656495-1 (Version None)
Quarter: 2005Q2

REPORT INFORMATION
  Report Type: 
  Country: None (occurrence: None)
  Receive Date: 20050504
  Receipt Date: 20050421
  Transmission Date: 20051028
  Serious: Yes (Hospitalization)
  Sender: FDA-Public Use
  Company Number: 05P-163-0298321-00

PATIENT
  Age: 56 Year
  Sex: Male
  Weight: 110 kg

DRUGS (8)
  1. HUMIRA [Suspect]
     Indication: RHEUMATOID ARTHRITIS
     Dosage: SEE IMAGE
     Route: 058
     Dates: end: 20041201
  2. HUMIRA [Suspect]
     Indication: RHEUMATOID ARTHRITIS
     Dosage: SEE IMAGE
     Route: 058
     Dates: start: 20050301
  3. ATORVASTATIN CALCIUM [Concomitant]
  4. PREDNISONE [Concomitant]
  5. MELOXICAM [Concomitant]
  6. MULTI-VITAMINS [Concomitant]
  7. ACETYL SALICYLIC ACID USP BAT [Concomitant]
  8. LOSARTAN POTASSIUM [Concomitant]

REACTIONS (5)
  - ANKLE FRACTURE [None]
  - CONDITION AGGRAVATED [None]
  - FALL [None]
  - IMPAIRED HEALING [None]
  - RHEUMATOID ARTHRITIS [None]
